FAERS Safety Report 25790308 (Version 1)
Quarter: 2025Q3

REPORT INFORMATION
  Report Type: Spontaneous
  Country: EU (occurrence: EU)
  Receive Date: 20250911
  Receipt Date: 20250911
  Transmission Date: 20251021
  Serious: Yes (Other)
  Sender: RANBAXY
  Company Number: EU-CADRBFARM-2025336398

PATIENT
  Age: 63 Year
  Sex: Male
  Weight: 108 kg

DRUGS (2)
  1. SONIDEGIB [Suspect]
     Active Substance: SONIDEGIB
     Indication: Basal cell naevus syndrome
     Dosage: 200 MILLIGRAM, DAILY, 200 MG 1X TGL.
     Route: 048
     Dates: start: 20241007
  2. SONIDEGIB [Suspect]
     Active Substance: SONIDEGIB
     Indication: Basal cell carcinoma

REACTIONS (1)
  - Erectile dysfunction [Recovering/Resolving]
